FAERS Safety Report 9752213 (Version 1)
Quarter: 2013Q4

REPORT INFORMATION
  Report Type: Spontaneous
  Country: FR (occurrence: None)
  Receive Date: 20131211
  Receipt Date: 20131211
  Transmission Date: 20140711
  Serious: Yes (Other)
  Sender: FDA-Public Use
  Company Number: 7253485

PATIENT
  Age: 65 Year
  Sex: Female

DRUGS (3)
  1. LEVOTHYROX (LEVOTHYROXINE SODIUM) INFUSION [Suspect]
     Indication: POST PROCEDURAL HYPOTHYROIDISM
     Dates: start: 2007
  2. PRITOR (TELMISARTAN) [Concomitant]
  3. BISOPROLOL (BISOPROLOL) [Concomitant]

REACTIONS (3)
  - Eye haemorrhage [None]
  - Breast discharge [None]
  - Vulvovaginal burning sensation [None]
